FAERS Safety Report 16937714 (Version 5)
Quarter: 2021Q3

REPORT INFORMATION
  Report Type: Spontaneous
  Country: JP (occurrence: JP)
  Receive Date: 20191018
  Receipt Date: 20210817
  Transmission Date: 20211014
  Serious: No
  Sender: FDA-Public Use
  Company Number: JP-PFIZER INC-2019443300

PATIENT
  Age: 10 Year
  Sex: Female

DRUGS (2)
  1. FOSTOIN [Suspect]
     Active Substance: FOSPHENYTOIN SODIUM
     Indication: ENCEPHALITIS AUTOIMMUNE
     Dosage: 750 MG, UNK
     Route: 042
     Dates: start: 20191001
  2. FOSTOIN [Suspect]
     Active Substance: FOSPHENYTOIN SODIUM
     Indication: SEIZURE
     Dosage: 250 MG, DAILY
     Route: 042
     Dates: start: 20191002, end: 20191008

REACTIONS (2)
  - Pyrexia [Unknown]
  - Rash [Recovered/Resolved]

NARRATIVE: CASE EVENT DATE: 20191007
